FAERS Safety Report 10200326 (Version 1)
Quarter: 2014Q2

REPORT INFORMATION
  Report Type: Spontaneous
  Country: US (occurrence: US)
  Receive Date: 20140527
  Receipt Date: 20140527
  Transmission Date: 20141212
  Serious: Yes (Other)
  Sender: FDA-Public Use
  Company Number: PHEH2014US010416

PATIENT
  Age: 55 Year
  Sex: 0

DRUGS (2)
  1. TASIGNA [Suspect]
     Dosage: 300 MG, BID
     Dates: start: 201208
  2. SIMVASTATIN [Suspect]

REACTIONS (1)
  - Lipase increased [Not Recovered/Not Resolved]
